FAERS Safety Report 9472342 (Version 1)
Quarter: 2013Q3

REPORT INFORMATION
  Report Type: Spontaneous
  Country: US (occurrence: US)
  Receive Date: 20130823
  Receipt Date: 20130823
  Transmission Date: 20140515
  Serious: Yes (Other)
  Sender: FDA-Public Use
  Company Number: US-JNJFOC-20130809168

PATIENT
  Age: 47 Year
  Sex: 0

DRUGS (5)
  1. INFLIXIMAB, RECOMBINANT [Suspect]
     Indication: PROPHYLAXIS AGAINST GRAFT VERSUS HOST DISEASE
     Dosage: 120-MIN INFUSION??ON DAY 0, 17, 114, 128, AND 142 OF CLINICAL INVESTIGATION
     Route: 042
  2. PENTOSTATIN [Suspect]
     Indication: ACUTE GRAFT VERSUS HOST DISEASE
     Route: 042
  3. CYCLOSPORINE [Suspect]
     Indication: PRODUCT USED FOR UNKNOWN INDICATION
     Route: 042
  4. METHOTREXATE [Suspect]
     Indication: PRODUCT USED FOR UNKNOWN INDICATION
     Dosage: DAY 3, 6 AND 11
     Route: 065
  5. METHOTREXATE [Suspect]
     Indication: PRODUCT USED FOR UNKNOWN INDICATION
     Dosage: ON DAY 1
     Route: 065

REACTIONS (2)
  - Cytomegalovirus viraemia [Unknown]
  - Off label use [Unknown]
